FAERS Safety Report 17120910 (Version 1)
Quarter: 2019Q4

REPORT INFORMATION
  Report Type: Spontaneous
  Country: US (occurrence: US)
  Receive Date: 20191205
  Receipt Date: 20191205
  Transmission Date: 20200122
  Serious: Yes (Life-Threatening)
  Sender: FDA-Public Use
  Company Number: None

PATIENT
  Sex: Male

DRUGS (1)
  1. CORICIDIN HBP COUGH AND COLD [Suspect]
     Active Substance: CHLORPHENIRAMINE MALEATE\DEXTROMETHORPHAN HYDROBROMIDE
     Indication: DRUG ABUSE
     Dosage: ?          QUANTITY:36 TABLET(S);OTHER FREQUENCY:MULTIPLE TIMES WEE;?
     Route: 048

REACTIONS (1)
  - Drug dependence [None]

NARRATIVE: CASE EVENT DATE: 20191204
